FAERS Safety Report 12644315 (Version 5)
Quarter: 2017Q3

REPORT INFORMATION
  Report Type: Report from Study
  Country: US (occurrence: US)
  Receive Date: 20160811
  Receipt Date: 20170922
  Transmission Date: 20171127
  Serious: Yes (Hospitalization)
  Sender: FDA-Public Use
  Company Number: US-BRISTOL-MYERS SQUIBB COMPANY-BMS-2016-063753

PATIENT
  Age: 50 Year
  Sex: Female
  Weight: 97.6 kg

DRUGS (15)
  1. ERLOTINIB [Suspect]
     Active Substance: ERLOTINIB
     Indication: PRODUCT USED FOR UNKNOWN INDICATION
     Dosage: 1 DF, UNK
     Route: 065
     Dates: start: 20160823, end: 20160907
  2. CLINDAMYCIN. [Concomitant]
     Active Substance: CLINDAMYCIN
     Indication: RASH
     Dosage: 1 %, UNK
     Route: 061
     Dates: start: 20160701
  3. BENADRYL [Concomitant]
     Active Substance: DIPHENHYDRAMINE HYDROCHLORIDE
     Indication: INFUSION RELATED REACTION
     Dosage: 25 MG, UNK
     Route: 042
     Dates: start: 20160706, end: 20160706
  4. SOLU-CORTEF [Concomitant]
     Active Substance: HYDROCORTISONE SODIUM SUCCINATE
     Indication: INFUSION RELATED REACTION
     Dosage: 100 MG, UNK
     Route: 042
     Dates: start: 20160706, end: 20160706
  5. PLAVIX [Concomitant]
     Active Substance: CLOPIDOGREL BISULFATE
     Indication: CORONARY ARTERY DISEASE
     Dosage: 75 MG, UNK
     Route: 048
     Dates: start: 20160715
  6. ERLOTINIB [Suspect]
     Active Substance: ERLOTINIB
     Indication: PRODUCT USED FOR UNKNOWN INDICATION
     Dosage: 1 DF, UNK
     Route: 065
     Dates: start: 20160908, end: 20161005
  7. NIVOLUMAB [Suspect]
     Active Substance: NIVOLUMAB
     Indication: PRODUCT USED FOR UNKNOWN INDICATION
     Dosage: 1 DF, TOTAL
     Route: 065
     Dates: start: 20160720, end: 20160720
  8. NIVOLUMAB [Suspect]
     Active Substance: NIVOLUMAB
     Indication: PRODUCT USED FOR UNKNOWN INDICATION
     Dosage: 1 DF, TOTAL
     Route: 065
     Dates: start: 20160622, end: 20160622
  9. NIVOLUMAB [Suspect]
     Active Substance: NIVOLUMAB
     Indication: PRODUCT USED FOR UNKNOWN INDICATION
     Dosage: 1 DF, TOTAL
     Route: 065
     Dates: start: 20160706, end: 20160706
  10. ERLOTINIB [Suspect]
     Active Substance: ERLOTINIB
     Indication: PRODUCT USED FOR UNKNOWN INDICATION
     Dosage: 1 DF, UNK
     Route: 065
     Dates: start: 20160706, end: 20160719
  11. ERLOTINIB [Suspect]
     Active Substance: ERLOTINIB
     Indication: PRODUCT USED FOR UNKNOWN INDICATION
     Dosage: 1 DF, UNK
     Route: 065
     Dates: start: 20160720, end: 20160812
  12. IMODIUM [Concomitant]
     Active Substance: LOPERAMIDE HYDROCHLORIDE
     Indication: DIARRHOEA
     Dosage: 2 MG, UNK
     Route: 048
     Dates: start: 20160701
  13. NIVOLUMAB [Suspect]
     Active Substance: NIVOLUMAB
     Indication: NON-SMALL CELL LUNG CANCER
     Dosage: 1 DF, TOTAL
     Route: 065
     Dates: start: 20160722, end: 20160722
  14. ERLOTINIB [Suspect]
     Active Substance: ERLOTINIB
     Indication: NON-SMALL CELL LUNG CANCER
     Dosage: 1 DF, UNK
     Route: 065
     Dates: start: 20160622, end: 20160705
  15. CLARITIN [Concomitant]
     Active Substance: LORATADINE
     Indication: RASH
     Dosage: 10 MG, UNK
     Route: 048
     Dates: start: 20160701

REACTIONS (1)
  - Tumour associated fever [Recovered/Resolved]

NARRATIVE: CASE EVENT DATE: 20160726
